FAERS Safety Report 15220884 (Version 1)
Quarter: 2018Q3

REPORT INFORMATION
  Report Type: Spontaneous
  Country: US (occurrence: US)
  Receive Date: 20180731
  Receipt Date: 20180731
  Transmission Date: 20181010
  Serious: Yes (Life-Threatening, Other)
  Sender: FDA-Public Use
  Company Number: PHHY2018US050432

PATIENT
  Age: 20 Year
  Sex: Male

DRUGS (1)
  1. DEFERASIROX [Suspect]
     Active Substance: DEFERASIROX
     Indication: SICKLE CELL DISEASE
     Dosage: UNK
     Route: 065

REACTIONS (10)
  - Hyperammonaemia [Recovered/Resolved]
  - Lactic acidosis [Recovered/Resolved]
  - Acute kidney injury [Recovered/Resolved]
  - Nausea [Unknown]
  - Agitation [Unknown]
  - Metabolic encephalopathy [Unknown]
  - Unresponsive to stimuli [Unknown]
  - Vomiting [Unknown]
  - Mental status changes [Unknown]
  - Hyperventilation [Unknown]
